FAERS Safety Report 10051140 (Version 2)
Quarter: 2014Q2

REPORT INFORMATION
  Report Type: Spontaneous
  Country: US (occurrence: US)
  Receive Date: 20140401
  Receipt Date: 20140401
  Transmission Date: 20141212
  Serious: No
  Sender: FDA-Public Use
  Company Number: US-ASTRAZENECA-2013SE50287

PATIENT
  Age: 23958 Day
  Sex: Female
  Weight: 50.8 kg

DRUGS (1)
  1. NEXIUM [Suspect]
     Indication: GASTROOESOPHAGEAL REFLUX DISEASE
     Route: 048
     Dates: start: 20130701

REACTIONS (3)
  - Decreased activity [Unknown]
  - Feeling abnormal [Unknown]
  - Dizziness [Unknown]
